FAERS Safety Report 24913520 (Version 1)
Quarter: 2025Q1

REPORT INFORMATION
  Report Type: Spontaneous
  Country: FR (occurrence: FR)
  Receive Date: 20250201
  Receipt Date: 20250201
  Transmission Date: 20250408
  Serious: Yes (Hospitalization, Other)
  Sender: MERCK
  Company Number: None

PATIENT
  Age: 60 Year
  Sex: Male
  Weight: 76 kg

DRUGS (1)
  1. PEMBROLIZUMAB [Suspect]
     Active Substance: PEMBROLIZUMAB
     Indication: Renal cancer
     Dosage: 400 MG/6 WEEKS
     Route: 042
     Dates: start: 20240620, end: 20241108

REACTIONS (2)
  - Diabetes mellitus [Not Recovered/Not Resolved]
  - Diabetic ketosis [Not Recovered/Not Resolved]

NARRATIVE: CASE EVENT DATE: 20241015
